FAERS Safety Report 8114798-2 (Version None)
Quarter: 2012Q1

REPORT INFORMATION
  Report Type: 
  Country: None (occurrence: None)
  Receive Date: 20120206
  Receipt Date: 20120131
  Transmission Date: 20120608
  Serious: Yes (Death)
  Sender: FDA-Public Use
  Company Number: US-CELGENEUS-163-21880-12011078

PATIENT
  Sex: Female
  Weight: 57.204 kg

DRUGS (10)
  1. ALLOPURINOL [Concomitant]
     Dosage: 300 MILLIGRAM
     Route: 065
  2. POTASSIUM CHLORIDE [Concomitant]
     Dosage: 20 MILLIEQUIVALENTS
     Route: 065
  3. OMEPRAZOLE [Concomitant]
     Dosage: 20 MILLIGRAM
     Route: 065
  4. PHENERGAN [Concomitant]
     Dosage: 25 MILLIGRAM
     Route: 065
  5. REVLIMID [Suspect]
     Indication: NON-HODGKIN'S LYMPHOMA
     Dosage: 25 MILLIGRAM
     Route: 048
     Dates: start: 20111201
  6. COMPAZINE [Concomitant]
     Dosage: 10 MILLIGRAM
     Route: 065
  7. VITAMIN D [Concomitant]
     Dosage: 50000 IU (INTERNATIONAL UNIT)
     Route: 065
  8. CALCIUM [Concomitant]
     Route: 065
  9. HYDROCODONE BITARTRATE AND ACETAMINOPHEN [Concomitant]
     Dosage: 10/325MG
     Route: 065
  10. MORPHINE [Concomitant]
     Dosage: 60 MILLIGRAM
     Route: 065

REACTIONS (1)
  - NON-HODGKIN'S LYMPHOMA [None]
